FAERS Safety Report 22113184 (Version 1)
Quarter: 2023Q1

REPORT INFORMATION
  Report Type: Spontaneous
  Country: US (occurrence: None)
  Receive Date: 20230320
  Receipt Date: 20230320
  Transmission Date: 20230417
  Serious: No
  Sender: FDA-Public Use
  Company Number: 2023A057540

PATIENT
  Sex: Male
  Weight: 102.5 kg

DRUGS (1)
  1. SEROQUEL [Suspect]
     Active Substance: QUETIAPINE FUMARATE
     Indication: Sleep disorder
     Route: 048
     Dates: start: 202012, end: 202205

REACTIONS (5)
  - Torticollis [Unknown]
  - Dyskinesia [Unknown]
  - Insomnia [Unknown]
  - Medication error [Unknown]
  - Off label use [Unknown]
